FAERS Safety Report 16801489 (Version 2)
Quarter: 2019Q3

REPORT INFORMATION
  Report Type: Spontaneous
  Country: US (occurrence: US)
  Receive Date: 20190912
  Receipt Date: 20190930
  Transmission Date: 20191005
  Serious: Yes (Other)
  Sender: FDA-Public Use
  Company Number: US-THERAPEUTICSMD-2019TMD02982

PATIENT
  Age: 47 Year
  Sex: Female

DRUGS (2)
  1. RELIZEN [Suspect]
     Active Substance: DIETARY SUPPLEMENT\HERBALS
     Dosage: UNK
     Dates: start: 201908
  2. BIJUVA [Suspect]
     Active Substance: ESTRADIOL\PROGESTERONE
     Indication: HOT FLUSH
     Dosage: UNK
     Dates: start: 201908, end: 2019

REACTIONS (3)
  - Paraesthesia oral [Recovered/Resolved]
  - Furuncle [Recovered/Resolved]
  - Oral discomfort [Recovered/Resolved]

NARRATIVE: CASE EVENT DATE: 20190828
